FAERS Safety Report 11096241 (Version 1)
Quarter: 2015Q2

REPORT INFORMATION
  Report Type: Spontaneous
  Country: US (occurrence: None)
  Receive Date: 20150505
  Receipt Date: 20150505
  Transmission Date: 20150821
  Serious: Yes (Death, Life-Threatening, Other)
  Sender: FDA-Public Use
  Company Number: FK201502022

PATIENT
  Age: 65 Year
  Sex: Female

DRUGS (2)
  1. PARACETAMOL [Suspect]
     Active Substance: ACETAMINOPHEN
     Indication: PYREXIA
  2. AMIODARONE HCL [Suspect]
     Active Substance: AMIODARONE HYDROCHLORIDE
     Indication: ATRIAL FIBRILLATION

REACTIONS (7)
  - Fungaemia [None]
  - Hypotension [None]
  - Multi-organ failure [None]
  - Drug-induced liver injury [None]
  - Alanine aminotransferase increased [None]
  - Nausea [None]
  - Aspartate aminotransferase increased [None]
